FAERS Safety Report 7000656-3 (Version None)
Quarter: 2010Q3

REPORT INFORMATION
  Report Type: 
  Country: None (occurrence: None)
  Receive Date: 20100920
  Receipt Date: 20100202
  Transmission Date: 20110219
  Serious: No
  Sender: FDA-Public Use
  Company Number: US-ASTRAZENECA-2010SE04717

PATIENT
  Sex: Female
  Weight: 55.8 kg

DRUGS (4)
  1. SEROQUEL [Suspect]
     Indication: BIPOLAR DISORDER
     Route: 048
     Dates: start: 20080101, end: 20100115
  2. LORTAB [Concomitant]
     Indication: PAIN
  3. HYDROCODONE [Concomitant]
     Indication: PAIN
  4. ROBAXIN [Concomitant]
     Indication: HYPOTONIA

REACTIONS (5)
  - AGORAPHOBIA [None]
  - ANXIETY [None]
  - DRUG DOSE OMISSION [None]
  - INSOMNIA [None]
  - PANIC ATTACK [None]
